FAERS Safety Report 25255134 (Version 1)
Quarter: 2025Q2

REPORT INFORMATION
  Report Type: Spontaneous
  Country: FR (occurrence: FR)
  Receive Date: 20250430
  Receipt Date: 20250430
  Transmission Date: 20250716
  Serious: Yes (Hospitalization)
  Sender: TEVA
  Company Number: None

PATIENT
  Age: 60 Year
  Sex: Male

DRUGS (3)
  1. VINCRISTINE [Suspect]
     Active Substance: VINCRISTINE
     Indication: Glioma
     Route: 042
     Dates: start: 20250217, end: 20250217
  2. PROCARBAZINE HYDROCHLORIDE [Suspect]
     Active Substance: PROCARBAZINE HYDROCHLORIDE
     Indication: Glioma
     Route: 048
     Dates: start: 20250217, end: 20250302
  3. LOMUSTINE [Suspect]
     Active Substance: LOMUSTINE
     Indication: Glioma
     Route: 048
     Dates: start: 20250210, end: 20250210

REACTIONS (2)
  - Thrombocytopenia [Recovering/Resolving]
  - Peripheral ischaemia [Recovering/Resolving]

NARRATIVE: CASE EVENT DATE: 20250310
